FAERS Safety Report 7841786-3 (Version None)
Quarter: 2011Q4

REPORT INFORMATION
  Report Type: 
  Country: None (occurrence: None)
  Receive Date: 20111019
  Receipt Date: 20111006
  Transmission Date: 20120403
  Serious: Yes (Hospitalization)
  Sender: FDA-Public Use
  Company Number: 2011SP044854

PATIENT
  Age: 45 Year
  Sex: Male
  Weight: 96 kg

DRUGS (6)
  1. NICOBION [Concomitant]
  2. RIBAVIRIN [Suspect]
     Indication: HEPATITIS C
     Dosage: 1200 MG; QD
     Dates: start: 20091124, end: 20110902
  3. PEG-INTRON [Suspect]
     Indication: HEPATITIS C
     Dosage: 50 MCG; QW
     Dates: start: 20091124
  4. PROPRANOLOL [Concomitant]
  5. VITAMIN B COMPLEX TAB [Concomitant]
  6. LANTUS [Concomitant]

REACTIONS (16)
  - ANAEMIA MACROCYTIC [None]
  - HEPATIC ENCEPHALOPATHY [None]
  - HYPONATRAEMIA [None]
  - DISORIENTATION [None]
  - ASCITES [None]
  - INFECTIOUS PERITONITIS [None]
  - HEPATIC CIRRHOSIS [None]
  - ERYTHROSIS [None]
  - OEDEMA PERIPHERAL [None]
  - HEPATOMEGALY [None]
  - HYPOKALAEMIA [None]
  - ALTERED STATE OF CONSCIOUSNESS [None]
  - CYTOLYTIC HEPATITIS [None]
  - CONDITION AGGRAVATED [None]
  - POLYCYSTIC LIVER DISEASE [None]
  - THROMBOCYTOPENIA [None]
